FAERS Safety Report 24666570 (Version 1)
Quarter: 2024Q4

REPORT INFORMATION
  Report Type: Spontaneous
  Country: US (occurrence: US)
  Receive Date: 20241126
  Receipt Date: 20241126
  Transmission Date: 20250114
  Serious: Yes (Hospitalization)
  Sender: PFIZER
  Company Number: US-PFIZER INC-PV202400151769

PATIENT
  Age: 24 Year
  Sex: Male

DRUGS (1)
  1. DEXTROSE [Suspect]
     Active Substance: DEXTROSE MONOHYDRATE
     Dosage: INFUSED 3-4 LITERS OF D5W INTO HIS ABDOMEN AND 1 LITER INTO HIS SCROTUM

REACTIONS (2)
  - Intentional product misuse [Recovered/Resolved]
  - Hyponatraemia [Recovered/Resolved]
